FAERS Safety Report 14680092 (Version 2)
Quarter: 2018Q2

REPORT INFORMATION
  Report Type: Spontaneous
  Country: US (occurrence: US)
  Receive Date: 20180326
  Receipt Date: 20180402
  Transmission Date: 20180711
  Serious: Yes (Death, Hospitalization)
  Sender: FDA-Public Use
  Company Number: US-JNJFOC-20180333608

PATIENT
  Age: 72 Year
  Sex: Female

DRUGS (3)
  1. XARELTO [Suspect]
     Active Substance: RIVAROXABAN
     Indication: THROMBOSIS PROPHYLAXIS
     Dosage: VARYING DOSES OF 10 MG AND 20 MG
     Route: 048
     Dates: start: 20130118, end: 20160602
  2. XARELTO [Suspect]
     Active Substance: RIVAROXABAN
     Indication: ATRIAL FIBRILLATION
     Dosage: VARYING DOSES OF 10 MG AND 20 MG
     Route: 048
     Dates: start: 20130118, end: 20160602
  3. XARELTO [Suspect]
     Active Substance: RIVAROXABAN
     Indication: CEREBROVASCULAR ACCIDENT PROPHYLAXIS
     Dosage: VARYING DOSES OF 10 MG AND 20 MG
     Route: 048
     Dates: start: 20130118, end: 20160602

REACTIONS (7)
  - Fall [Not Recovered/Not Resolved]
  - Off label use [Unknown]
  - Haematoma [Fatal]
  - Hypotension [Fatal]
  - Acute kidney injury [Fatal]
  - Shock [Fatal]
  - Prescribed underdose [Unknown]

NARRATIVE: CASE EVENT DATE: 20130118
